FAERS Safety Report 9181513 (Version 2)
Quarter: 2013Q2

REPORT INFORMATION
  Report Type: Spontaneous
  Country: US (occurrence: US)
  Receive Date: 20130322
  Receipt Date: 20130520
  Transmission Date: 20140414
  Serious: Yes (Other)
  Sender: FDA-Public Use
  Company Number: US-PFIZER INC-2013092942

PATIENT
  Age: 58 Year
  Sex: Female

DRUGS (4)
  1. CHANTIX [Suspect]
     Dosage: UNK
     Dates: start: 20090408
  2. CHANTIX [Suspect]
     Dosage: 0.5 MG DAILY FOR FIRST 3 DAYS
     Route: 048
  3. CHANTIX [Suspect]
     Dosage: 0.5 MG, 2X/DAY FOR NEXT 4-7 DAYS
     Route: 048
  4. CHANTIX [Suspect]
     Dosage: 1 MG, 2X/DAY FOR REMAINING 12 WEEKS
     Route: 048

REACTIONS (2)
  - Suicidal ideation [Unknown]
  - Loss of consciousness [Unknown]
